FAERS Safety Report 19708626 (Version 1)
Quarter: 2021Q3

REPORT INFORMATION
  Report Type: Spontaneous
  Country: US (occurrence: US)
  Receive Date: 20210816
  Receipt Date: 20210816
  Transmission Date: 20211014
  Serious: No
  Sender: FDA-Public Use
  Company Number: US-SA-2021SA269191

PATIENT
  Sex: Female

DRUGS (2)
  1. ACCUTANE [Concomitant]
     Active Substance: ISOTRETINOIN
  2. DUPIXENT [Suspect]
     Active Substance: DUPILUMAB
     Indication: DERMATITIS ATOPIC
     Dosage: UNKNOWN

REACTIONS (1)
  - Back pain [Unknown]
